FAERS Safety Report 5499330-4 (Version None)
Quarter: 2007Q4

REPORT INFORMATION
  Report Type: 
  Country: None (occurrence: None)
  Receive Date: 20071026
  Receipt Date: 20071009
  Transmission Date: 20080405
  Serious: Yes (Death)
  Sender: FDA-Public Use
  Company Number: US-ASTRAZENECA-2006UW11387

PATIENT
  Age: 28067 Day
  Sex: Female
  Weight: 63.6 kg

DRUGS (3)
  1. SEROQUEL [Suspect]
     Route: 048
     Dates: start: 20010101, end: 20060101
  2. RISPERDAL [Suspect]
  3. ZYPREXA [Suspect]

REACTIONS (2)
  - DIABETES MELLITUS [None]
  - SUDDEN DEATH [None]
